FAERS Safety Report 18998952 (Version 1)
Quarter: 2021Q1

REPORT INFORMATION
  Report Type: Spontaneous
  Country: US (occurrence: US)
  Receive Date: 20210311
  Receipt Date: 20210311
  Transmission Date: 20210420
  Serious: Yes (Hospitalization, Other)
  Sender: FDA-Public Use
  Company Number: US-GILEAD-2021-0520381

PATIENT
  Sex: Female

DRUGS (1)
  1. TRUVADA [Suspect]
     Active Substance: EMTRICITABINE\TENOFOVIR DISOPROXIL FUMARATE
     Indication: HIV INFECTION
     Route: 065

REACTIONS (9)
  - Paralysis [Unknown]
  - Tooth loss [Unknown]
  - Rhabdomyolysis [Unknown]
  - Fall [Unknown]
  - COVID-19 [Unknown]
  - Bone loss [Unknown]
  - Dysphemia [Unknown]
  - Gait disturbance [Unknown]
  - Hypoaesthesia [Unknown]
